FAERS Safety Report 8105249-2 (Version None)
Quarter: 2012Q1

REPORT INFORMATION
  Report Type: 
  Country: None (occurrence: None)
  Receive Date: 20120201
  Receipt Date: 20120124
  Transmission Date: 20120608
  Serious: Yes (Death)
  Sender: FDA-Public Use
  Company Number: AU-SANOFI-AVENTIS-2012SA005865

PATIENT

DRUGS (1)
  1. DOCETAXEL [Suspect]
     Route: 065

REACTIONS (1)
  - DEATH [None]
